FAERS Safety Report 10470018 (Version 1)
Quarter: 2014Q3

REPORT INFORMATION
  Report Type: Spontaneous
  Country: US (occurrence: US)
  Receive Date: 20140923
  Receipt Date: 20140923
  Transmission Date: 20150326
  Serious: No
  Sender: FDA-Public Use
  Company Number: US-SHIONOGI, INC-2014000757

PATIENT
  Age: 62 Year
  Sex: Female

DRUGS (9)
  1. MULTIVITAMIN                       /00097801/ [Concomitant]
     Active Substance: VITAMINS
     Dosage: UNK. DAILY
  2. SPIRONOLACTONE. [Concomitant]
     Active Substance: SPIRONOLACTONE
     Indication: ALOPECIA
     Dosage: 50 MG, QD
     Dates: start: 201403
  3. VITAMIN D                          /00107901/ [Concomitant]
     Active Substance: ERGOCALCIFEROL
     Dosage: 500 MG, QD
  4. VITAMINS NOS [Concomitant]
     Active Substance: VITAMINS
     Dosage: UNK, QD
  5. COQ10                              /00517201/ [Concomitant]
     Dosage: 200 MG, QD
  6. ZINC [Concomitant]
     Active Substance: ZINC\ZINC CHLORIDE
     Dosage: 3 MG, QD
  7. OSPHENA [Suspect]
     Active Substance: OSPEMIFENE
     Dosage: UNK
     Dates: start: 201406
  8. ESTRACE [Concomitant]
     Active Substance: ESTRADIOL
     Dosage: UNK
  9. FISH OIL [Concomitant]
     Active Substance: FISH OIL
     Dosage: 2000 MG, QD

REACTIONS (5)
  - Paraesthesia [Unknown]
  - Erythema [Unknown]
  - Swelling [Unknown]
  - Pain of skin [Unknown]
  - Pain [Unknown]

NARRATIVE: CASE EVENT DATE: 20140709
